FAERS Safety Report 9529189 (Version 3)
Quarter: 2013Q3

REPORT INFORMATION
  Report Type: Report from Study
  Country: FR (occurrence: FR)
  Receive Date: 20130917
  Receipt Date: 20130920
  Transmission Date: 20140515
  Serious: Yes (Hospitalization)
  Sender: FDA-Public Use
  Company Number: FR-ASTRAZENECA-2013SE34933

PATIENT
  Age: 369 Month
  Sex: Male
  Weight: 88 kg

DRUGS (4)
  1. XEROQUEL [Suspect]
     Indication: SCHIZOPHRENIA
     Route: 048
     Dates: start: 20130214
  2. LOXAPAC [Concomitant]
     Route: 048
     Dates: start: 20130102
  3. LOXAPAC [Concomitant]
     Route: 048
     Dates: start: 20130214
  4. TERCIAN [Concomitant]
     Route: 048
     Dates: start: 20130102

REACTIONS (3)
  - Treatment noncompliance [Recovered/Resolved]
  - Anxiety [Recovered/Resolved]
  - Delusion [Recovered/Resolved]
